FAERS Safety Report 9766135 (Version 1)
Quarter: 2013Q4

REPORT INFORMATION
  Report Type: Spontaneous
  Country: US (occurrence: US)
  Receive Date: 20131217
  Receipt Date: 20131217
  Transmission Date: 20140711
  Serious: No
  Sender: FDA-Public Use
  Company Number: US-TEVA-446983USA

PATIENT
  Age: 36 Year
  Sex: Female
  Weight: 94.43 kg

DRUGS (3)
  1. PARAGARD 380A [Suspect]
     Indication: CONTRACEPTION
     Route: 015
     Dates: start: 20131101
  2. ZOLOFT [Concomitant]
  3. ZOFRAN [Concomitant]

REACTIONS (3)
  - Device expulsion [Not Recovered/Not Resolved]
  - Pelvic pain [Not Recovered/Not Resolved]
  - Exposure during breast feeding [Unknown]
